FAERS Safety Report 24605197 (Version 2)
Quarter: 2025Q3

REPORT INFORMATION
  Report Type: Spontaneous
  Country: US (occurrence: US)
  Receive Date: 20241111
  Receipt Date: 20250724
  Transmission Date: 20251020
  Serious: No
  Sender: SANDOZ
  Company Number: US-SANDOZ-SDZ2024US093963

PATIENT
  Sex: Female

DRUGS (3)
  1. BRIMONIDINE TARTRATE AND TIMOLOL MALEATE [Suspect]
     Active Substance: BRIMONIDINE TARTRATE\TIMOLOL MALEATE
     Indication: Product used for unknown indication
     Dosage: 0.2 %, BID, BRIMONIDIN 0.2%/TIMO 0.5% 5ML LDP V1 US
     Route: 047
  2. DORZOLAMIDE [Concomitant]
     Active Substance: DORZOLAMIDE
     Indication: Product used for unknown indication
     Dosage: UNK, BID(2X/DAILY)
     Route: 065
  3. LATANOPROST [Concomitant]
     Active Substance: LATANOPROST
     Indication: Product used for unknown indication
     Dosage: UNK UNK, QD(1 DROP NIGHTL)
     Route: 065

REACTIONS (3)
  - Injury associated with device [Unknown]
  - Poor quality device used [Unknown]
  - Device material issue [Unknown]
